FAERS Safety Report 14509731 (Version 1)
Quarter: 2018Q1

REPORT INFORMATION
  Report Type: Spontaneous
  Country: US (occurrence: US)
  Receive Date: 20180209
  Receipt Date: 20180209
  Transmission Date: 20180509
  Serious: No
  Sender: FDA-Public Use
  Company Number: US-PFIZER INC-2018054648

PATIENT
  Age: 60 Year
  Sex: Male
  Weight: 113.38 kg

DRUGS (1)
  1. GABAPENTIN. [Suspect]
     Active Substance: GABAPENTIN
     Indication: DIABETIC NEUROPATHY
     Dosage: 900 MG, 3X/DAY (300 MG, THREE CAPSULES, THREE TIMES A DAY)
     Route: 048

REACTIONS (4)
  - Overdose [Unknown]
  - Tinnitus [Recovering/Resolving]
  - Paraesthesia [Unknown]
  - Drug ineffective for unapproved indication [Unknown]
